FAERS Safety Report 25404361 (Version 1)
Quarter: 2025Q2

REPORT INFORMATION
  Report Type: Spontaneous
  Country: US (occurrence: US)
  Receive Date: 20250606
  Receipt Date: 20250606
  Transmission Date: 20250716
  Serious: No
  Sender: PIERRE FABRE MEDICAMENT
  Company Number: US-PFM-2024-03127

PATIENT
  Sex: Female
  Weight: 8.617 kg

DRUGS (3)
  1. HEMANGEOL [Suspect]
     Active Substance: PROPRANOLOL HYDROCHLORIDE
     Indication: Haemangioma
     Dosage: 1 ML, BID (2/DAY)
     Dates: start: 20221201
  2. HEMANGEOL [Suspect]
     Active Substance: PROPRANOLOL HYDROCHLORIDE
     Dosage: 1.5 ML, BID (2/DAY)
  3. HEMANGEOL [Suspect]
     Active Substance: PROPRANOLOL HYDROCHLORIDE
     Dosage: 2 ML, BID (2/DAY)

REACTIONS (7)
  - Haemangioma [Unknown]
  - Condition aggravated [Unknown]
  - Aggression [Unknown]
  - Decreased appetite [Recovering/Resolving]
  - Sleep disorder [Unknown]
  - Product administered to patient of inappropriate age [Unknown]
  - Off label use [Unknown]
